FAERS Safety Report 9538263 (Version 1)
Quarter: 2013Q3

REPORT INFORMATION
  Report Type: Spontaneous
  Country: GB (occurrence: GB)
  Receive Date: 20130920
  Receipt Date: 20130920
  Transmission Date: 20140515
  Serious: Yes (Other)
  Sender: FDA-Public Use
  Company Number: GB-009507513-1309GBR005641

PATIENT
  Age: 49 Year
  Sex: Male
  Weight: 57 kg

DRUGS (3)
  1. RIBAVIRIN [Suspect]
     Indication: HEPATITIS C
     Dosage: DAILY DOSE: 1000MG, 1 IN 1 DAY
     Route: 048
     Dates: start: 20121012, end: 20130108
  2. PEGASYS [Suspect]
     Indication: HEPATITIS C
     Dosage: 180 MICROGRAMS WEEKLY, 1 IN 1 WEEK
     Route: 058
     Dates: start: 20121012, end: 20130108
  3. TELAPREVIR [Suspect]
     Indication: HEPATITIS C
     Dosage: 750 MG, THREE TIMES A DAY
     Route: 048
     Dates: start: 20121012, end: 20130108

REACTIONS (4)
  - Retinal exudates [Recovered/Resolved]
  - Retinal haemorrhage [Recovered/Resolved]
  - Vitreous floaters [Recovered/Resolved]
  - Vision blurred [Unknown]
